FAERS Safety Report 16011532 (Version 1)
Quarter: 2019Q1

REPORT INFORMATION
  Report Type: Spontaneous
  Country: US (occurrence: US)
  Receive Date: 20190227
  Receipt Date: 20190227
  Transmission Date: 20190418
  Serious: Yes (Other)
  Sender: FDA-Public Use
  Company Number: US-PFIZER INC-2019072976

PATIENT
  Age: 62 Year
  Sex: Female
  Weight: 54.43 kg

DRUGS (1)
  1. LYRICA [Suspect]
     Active Substance: PREGABALIN
     Indication: FIBROMYALGIA
     Dosage: 300 MG, DAILY (75 MG CAPSULE BY MOUTH TWICE A DAY, THEN 2 75 MG CAPSULES BY MOUTH AT BEDTIME)
     Route: 048

REACTIONS (4)
  - Therapeutic response unexpected [Unknown]
  - Drug effect decreased [Not Recovered/Not Resolved]
  - Weight increased [Not Recovered/Not Resolved]
  - Pre-existing condition improved [Unknown]
